FAERS Safety Report 7819894-2 (Version None)
Quarter: 2011Q4

REPORT INFORMATION
  Report Type: 
  Country: None (occurrence: None)
  Receive Date: 20111018
  Receipt Date: 20101203
  Transmission Date: 20120403
  Serious: No
  Sender: FDA-Public Use
  Company Number: US-ASTRAZENECA-2010SE57414

PATIENT
  Age: 40 Year
  Sex: Female
  Weight: 61.2 kg

DRUGS (7)
  1. BENADRYL [Concomitant]
  2. VENTOLIN [Concomitant]
  3. SYMBICORT [Suspect]
     Route: 055
     Dates: start: 20100101, end: 20100101
  4. PULMICORT [Suspect]
     Route: 055
     Dates: start: 20100101, end: 20101001
  5. XOPENEX [Suspect]
     Indication: ASTHMA
     Dosage: Q6H, SIX TIMES A DAY
     Route: 055
     Dates: start: 20101001, end: 20101102
  6. IBUPROFEN [Concomitant]
  7. DIAZEPAM [Concomitant]

REACTIONS (10)
  - ABDOMINAL PAIN UPPER [None]
  - OEDEMA PERIPHERAL [None]
  - PARAESTHESIA [None]
  - DRUG INEFFECTIVE [None]
  - ECZEMA [None]
  - BACK PAIN [None]
  - SWELLING FACE [None]
  - PARAESTHESIA ORAL [None]
  - NAUSEA [None]
  - ANXIETY [None]
